FAERS Safety Report 25795530 (Version 1)
Quarter: 2025Q3

REPORT INFORMATION
  Report Type: Spontaneous
  Country: US (occurrence: US)
  Receive Date: 20250912
  Receipt Date: 20250912
  Transmission Date: 20251021
  Serious: Yes (Life-Threatening, Hospitalization)
  Sender: MYLAN
  Company Number: US-MYLANLABS-2025M1077119

PATIENT
  Age: 62 Year
  Sex: Male

DRUGS (4)
  1. BIVALIRUDIN [Suspect]
     Active Substance: BIVALIRUDIN
     Indication: Anticoagulant therapy
  2. BIVALIRUDIN [Suspect]
     Active Substance: BIVALIRUDIN
     Indication: Superior vena cava syndrome
     Route: 065
  3. BIVALIRUDIN [Suspect]
     Active Substance: BIVALIRUDIN
     Route: 065
  4. BIVALIRUDIN [Suspect]
     Active Substance: BIVALIRUDIN

REACTIONS (1)
  - Drug ineffective [Unknown]
